FAERS Safety Report 14320476 (Version 3)
Quarter: 2017Q4

REPORT INFORMATION
  Report Type: Spontaneous
  Country: BE (occurrence: BE)
  Receive Date: 20171222
  Receipt Date: 20171222
  Transmission Date: 20180321
  Serious: Yes (Other)
  Sender: FDA-Public Use
  Company Number: PHHY2017BE184346

PATIENT
  Age: 56 Year

DRUGS (3)
  1. TOBRAMYCIN. [Suspect]
     Active Substance: TOBRAMYCIN
     Indication: CORNEAL ABSCESS
     Dosage: UNK
     Route: 061
  2. MOXIFLOXACIN. [Suspect]
     Active Substance: MOXIFLOXACIN
     Indication: CORNEAL ABSCESS
     Dosage: UNK
     Route: 061
  3. DESOMEDINE [Concomitant]
     Active Substance: HEXAMIDINE DIISETHIONATE
     Indication: CORNEAL ABSCESS
     Dosage: UNK
     Route: 061

REACTIONS (6)
  - Corneal perforation [Recovered/Resolved]
  - Impaired healing [Recovered/Resolved]
  - Product use in unapproved indication [Unknown]
  - Ulcerative keratitis [Recovering/Resolving]
  - Iris adhesions [Unknown]
  - Corneal flap complication [Recovering/Resolving]
